FAERS Safety Report 19479432 (Version 1)
Quarter: 2021Q3

REPORT INFORMATION
  Report Type: Report from Study
  Country: US (occurrence: US)
  Receive Date: 20210701
  Receipt Date: 20210701
  Transmission Date: 20211014
  Serious: Yes (Other)
  Sender: FDA-Public Use
  Company Number: US-JNJFOC-20210648082

PATIENT
  Age: 72 Year
  Sex: Female

DRUGS (1)
  1. MACITENTAN [Suspect]
     Active Substance: MACITENTAN
     Indication: PULMONARY ARTERIAL HYPERTENSION
     Route: 048
     Dates: start: 2019

REACTIONS (4)
  - Dehydration [Recovering/Resolving]
  - Pneumonitis [Recovering/Resolving]
  - Heat exhaustion [Recovering/Resolving]
  - Heat stroke [Recovering/Resolving]

NARRATIVE: CASE EVENT DATE: 20210616
